FAERS Safety Report 7140543 (Version 5)
Quarter: 2013Q4

REPORT INFORMATION
  Report Type: Report from Study
  Country: JP (occurrence: JP)
  Receive Date: 20091006
  Receipt Date: 20131107
  Transmission Date: 20140711
  Serious: Yes (Death, Hospitalization, Other)
  Sender: FDA-Public Use
  Company Number: JP-BRISTOL-MYERS SQUIBB COMPANY-14802912

PATIENT
  Age: 79 Year
  Sex: Female
  Weight: 45 kg

DRUGS (18)
  1. SPRYCEL [Suspect]
     Indication: ACUTE LYMPHOCYTIC LEUKAEMIA
     Dosage: 24JUL09-11SEP?120MG/D:12SEP-4NOV09?140MG/D:05NOV-24NOV09?INTER-24NOV09?START:24DEC09?19DEC09
     Route: 048
     Dates: start: 20090724, end: 20091219
  2. VINCRISTINE SULFATE [Suspect]
     Indication: ACUTE LYMPHOCYTIC LEUKAEMIA
     Dosage: INJ?24JUL09,31JUL09,7AUG09?25NOV09,2DEC09
     Route: 042
     Dates: start: 20090724, end: 20091216
  3. DANAPAROID SODIUM [Concomitant]
     Indication: ACUTE LYMPHOCYTIC LEUKAEMIA
     Dosage: INJ?1 DF=2500 V
     Route: 042
     Dates: start: 20090717, end: 20090724
  4. PREDNISOLONE [Concomitant]
     Indication: ACUTE LYMPHOCYTIC LEUKAEMIA
     Dosage: TABS?24JUL09-25JUL09:50MG?26JUL09-27JUL09:30MG?28JUL09-29JUL09:20MG?30JUL09-31JUL09:10MG
     Route: 048
     Dates: start: 20090724, end: 20090731
  5. OLOPATADINE HCL [Concomitant]
     Indication: PROPHYLAXIS
     Dosage: TABS
     Route: 048
     Dates: start: 20090724, end: 20091104
  6. VALSARTAN [Concomitant]
     Dosage: TABS;40MG/DAY FROM 18OCT09.?80MG TILL 17OCT09
     Route: 048
     Dates: end: 20091218
  7. IRSOGLADINE MALEATE [Concomitant]
     Indication: PROPHYLAXIS
     Route: 048
     Dates: end: 20091104
  8. FLUCONAZOLE [Concomitant]
     Indication: PROPHYLAXIS
     Dosage: CAPS
     Route: 048
     Dates: end: 20091010
  9. ALLOPURINOL [Concomitant]
     Dosage: TABS
     Route: 048
     Dates: end: 20091218
  10. SULFAMETHOXAZOLE + TRIMETHOPRIM [Concomitant]
     Indication: PROPHYLAXIS
     Dosage: 1 DF = 2 TABS
     Route: 048
     Dates: end: 20091218
  11. MUCOSTA [Concomitant]
     Indication: PROPHYLAXIS
     Route: 048
     Dates: start: 20091105, end: 20091218
  12. FUROSEMIDE [Concomitant]
     Route: 048
     Dates: start: 20090804
  13. CALCIUM POLYSTYRENE SULFONATE [Concomitant]
     Dosage: 2DF=2PACKS;JELLY.
     Route: 048
     Dates: start: 20090828, end: 20091104
  14. CYCLOPHOSPHAMIDE INJ [Concomitant]
     Indication: ACUTE LYMPHOCYTIC LEUKAEMIA
     Route: 042
     Dates: start: 20091125, end: 20091125
  15. DAUNORUBICIN HCL [Concomitant]
     Indication: ACUTE LYMPHOCYTIC LEUKAEMIA
     Dosage: INJ
     Route: 042
     Dates: start: 20091125, end: 20091127
  16. MAXIPIME FOR INJ [Concomitant]
     Route: 042
     Dates: start: 20091204, end: 20091214
  17. MEROPENEM [Concomitant]
     Dosage: MEROPENEM HYDRATE INJ
     Route: 042
     Dates: start: 20091215, end: 20091219
  18. MUCODYNE [Concomitant]
     Route: 048
     Dates: start: 20091126, end: 20091218

REACTIONS (11)
  - Ovarian cancer [Fatal]
  - Ascites [Fatal]
  - Generalised oedema [Fatal]
  - Oedema peripheral [Fatal]
  - White blood cell count decreased [Recovered/Resolved]
  - Neutrophil count decreased [Recovered/Resolved]
  - Platelet count decreased [Not Recovered/Not Resolved]
  - Anaemia [Recovering/Resolving]
  - Blood urea increased [Not Recovered/Not Resolved]
  - Blood creatinine increased [Not Recovered/Not Resolved]
  - Hyperkalaemia [Recovered/Resolved]
